FAERS Safety Report 7290996-5 (Version None)
Quarter: 2011Q1

REPORT INFORMATION
  Report Type: 
  Country: None (occurrence: None)
  Receive Date: 20110214
  Receipt Date: 20110204
  Transmission Date: 20110831
  Serious: Yes (Hospitalization)
  Sender: FDA-Public Use
  Company Number: US-GILEAD-2010-0031662

PATIENT
  Sex: Female
  Weight: 48.9 kg

DRUGS (22)
  1. SINGULAIR [Concomitant]
     Indication: RHINITIS ALLERGIC
  2. PROTONIX [Concomitant]
     Indication: GASTROOESOPHAGEAL REFLUX DISEASE
  3. ACTIGALL [Concomitant]
     Indication: CYSTIC FIBROSIS HEPATIC DISEASE
  4. ITRACONAZOLE [Concomitant]
     Indication: CYSTIC FIBROSIS LUNG
     Dates: start: 20100803
  5. AZITHROMYCIN [Concomitant]
     Indication: CYSTIC FIBROSIS LUNG
  6. PULMOZYME [Concomitant]
     Indication: CYSTIC FIBROSIS LUNG
  7. FIORICET [Concomitant]
     Indication: MIGRAINE
  8. LORATADINE [Concomitant]
     Indication: RHINITIS ALLERGIC
  9. SYMBICORT [Concomitant]
     Indication: ASTHMA
  10. XOPENEX [Concomitant]
     Indication: CYSTIC FIBROSIS LUNG
  11. PANCREASE MT 20 [Concomitant]
     Indication: PANCREATIC INSUFFICIENCY
  12. REGLAN [Concomitant]
     Indication: GASTROOESOPHAGEAL REFLUX DISEASE
  13. ALBUTEROL [Concomitant]
     Indication: CYSTIC FIBROSIS LUNG
     Dates: start: 20100329
  14. CALTRATE [Concomitant]
     Indication: OSTEOPENIA
  15. PREDNISONE [Concomitant]
     Indication: CYSTIC FIBROSIS LUNG
     Dates: start: 20100730
  16. VITAMIN D [Concomitant]
     Indication: OSTEOPENIA
  17. SENOKOT [Concomitant]
     Indication: CONSTIPATION
  18. XOLAIR [Concomitant]
     Indication: HYPERSENSITIVITY
  19. LANTUS [Concomitant]
     Indication: CYSTIC FIBROSIS RELATED DIABETES
  20. AZTREONAM [Suspect]
     Indication: CYSTIC FIBROSIS
     Route: 055
     Dates: start: 20100605, end: 20100828
  21. ADEK [Concomitant]
     Indication: PANCREATIC INSUFFICIENCY
  22. MIRALAX [Concomitant]
     Indication: CONSTIPATION

REACTIONS (1)
  - HAEMOPTYSIS [None]
